FAERS Safety Report 15726471 (Version 1)
Quarter: 2018Q4

REPORT INFORMATION
  Report Type: Spontaneous
  Country: US (occurrence: US)
  Receive Date: 20181217
  Receipt Date: 20181217
  Transmission Date: 20190205
  Serious: No
  Sender: FDA-Public Use
  Company Number: US-NOVOPROD-623937

PATIENT
  Age: 68 Year
  Sex: Female

DRUGS (1)
  1. LEVEMIR [Suspect]
     Active Substance: INSULIN DETEMIR
     Indication: PRODUCT USED FOR UNKNOWN INDICATION
     Dosage: UNK
     Route: 058
     Dates: start: 20180924

REACTIONS (5)
  - Wrong technique in device usage process [Unknown]
  - Blood glucose increased [Unknown]
  - Headache [Unknown]
  - Device failure [Unknown]
  - Anxiety [Unknown]

NARRATIVE: CASE EVENT DATE: 201809
